FAERS Safety Report 26148615 (Version 1)
Quarter: 2025Q4

REPORT INFORMATION
  Report Type: Report from Study
  Country: EU (occurrence: EU)
  Receive Date: 20251212
  Receipt Date: 20251212
  Transmission Date: 20260118
  Serious: Yes (Hospitalization)
  Sender: AMGEN
  Company Number: EU-ABBVIE-6570417

PATIENT
  Age: 83 Year
  Sex: Female

DRUGS (6)
  1. APREMILAST [Suspect]
     Active Substance: APREMILAST
     Indication: Product used for unknown indication
     Dosage: 30 MILLIGRAM
     Route: 065
     Dates: start: 20200708, end: 20230216
  2. APREMILAST [Suspect]
     Active Substance: APREMILAST
     Dosage: 60 MILLIGRAM
     Route: 065
     Dates: start: 20200625, end: 20200708
  3. RINVOQ [Suspect]
     Active Substance: UPADACITINIB
     Indication: Product used for unknown indication
     Route: 048
  4. METHOTREXATE [Suspect]
     Active Substance: METHOTREXATE
     Indication: Product used for unknown indication
     Route: 065
     Dates: start: 20110614
  5. METHOTREXATE [Suspect]
     Active Substance: METHOTREXATE
     Dosage: LAST ADMIN DATE: 2024
     Route: 065
     Dates: start: 20240130
  6. METHOTREXATE [Suspect]
     Active Substance: METHOTREXATE
     Dosage: 7.5 MILLIGRAM
     Route: 065
     Dates: start: 20240605

REACTIONS (2)
  - Diverticulitis [Unknown]
  - Foot fracture [Unknown]

NARRATIVE: CASE EVENT DATE: 20250304
